FAERS Safety Report 14715890 (Version 3)
Quarter: 2018Q4

REPORT INFORMATION
  Report Type: Spontaneous
  Country: US (occurrence: US)
  Receive Date: 20180404
  Receipt Date: 20181201
  Transmission Date: 20190204
  Serious: No
  Sender: FDA-Public Use
  Company Number: US-PFIZER INC-2018135697

PATIENT
  Age: 74 Year
  Sex: Female
  Weight: 66.21 kg

DRUGS (1)
  1. XELJANZ XR [Suspect]
     Active Substance: TOFACITINIB CITRATE
     Dosage: 11 MG, 1X/DAY
     Dates: end: 2018

REACTIONS (3)
  - Influenza [Unknown]
  - Wrist fracture [Unknown]
  - Malaise [Unknown]

NARRATIVE: CASE EVENT DATE: 2018
